FAERS Safety Report 9682643 (Version 1)
Quarter: 2013Q4

REPORT INFORMATION
  Report Type: Spontaneous
  Country: PL (occurrence: PL)
  Receive Date: 20131112
  Receipt Date: 20131112
  Transmission Date: 20140711
  Serious: Yes (Life-Threatening, Hospitalization)
  Sender: FDA-Public Use
  Company Number: PL-BAYER-2013-135688

PATIENT
  Age: 23 Year
  Sex: Male

DRUGS (1)
  1. BETAFERON [Suspect]
     Indication: RELAPSING-REMITTING MULTIPLE SCLEROSIS
     Dosage: 250 ?G, QOD
     Route: 058
     Dates: start: 201101, end: 201107

REACTIONS (2)
  - Thrombocytopenia [Recovered/Resolved]
  - Haemorrhagic diathesis [Recovered/Resolved]
